FAERS Safety Report 8983049 (Version 1)
Quarter: 2012Q4

REPORT INFORMATION
  Report Type: 
  Country: US (occurrence: US)
  Receive Date: 20121223
  Receipt Date: 20121223
  Transmission Date: 20130627
  Serious: Yes (Other)
  Sender: FDA-Public Use
  Company Number: US-JNJFOC-20121206713

PATIENT
  Sex: Female

DRUGS (5)
  1. REMICADE [Suspect]
     Indication: PSORIATIC ARTHROPATHY
     Route: 042
  2. AMITRIPTYLIN [Concomitant]
     Indication: FIBROMYALGIA
     Route: 065
  3. ATENOLOL [Concomitant]
     Indication: BLOOD PRESSURE
     Route: 065
  4. MULTIVITAMINS [Concomitant]
     Route: 065
  5. FISH OIL [Concomitant]
     Route: 065

REACTIONS (1)
  - Lupus-like syndrome [Recovered/Resolved]
